FAERS Safety Report 18319058 (Version 1)
Quarter: 2020Q3

REPORT INFORMATION
  Report Type: Spontaneous
  Country: IT (occurrence: IT)
  Receive Date: 20200928
  Receipt Date: 20200928
  Transmission Date: 20201103
  Serious: Yes (Hospitalization)
  Sender: FDA-Public Use
  Company Number: IT-UNICHEM PHARMACEUTICALS (USA) INC-UCM202009-001082

PATIENT
  Age: 73 Year
  Sex: Female

DRUGS (1)
  1. QUETIAPINE. [Suspect]
     Active Substance: QUETIAPINE
     Indication: OVERDOSE
     Dosage: 120 PILLS OF QUETIAPINE 400 MG

REACTIONS (8)
  - Drug level increased [Recovering/Resolving]
  - Electrocardiogram QT prolonged [Unknown]
  - Coma [Unknown]
  - Tachycardia [Unknown]
  - Overdose [Unknown]
  - Gastric perforation [Unknown]
  - Bezoar [Recovering/Resolving]
  - Hypotension [Unknown]
